FAERS Safety Report 8127866-6 (Version None)
Quarter: 2012Q1

REPORT INFORMATION
  Report Type: 
  Country: None (occurrence: None)
  Receive Date: 20120210
  Receipt Date: 20110928
  Transmission Date: 20120608
  Serious: No
  Sender: FDA-Public Use
  Company Number: US-GLAXOSMITHKLINE-A0947266A

PATIENT
  Age: 27 Year
  Sex: Female

DRUGS (1)
  1. PAXIL [Suspect]
     Indication: PANIC DISORDER
     Route: 048
     Dates: start: 20000101

REACTIONS (4)
  - LIVE BIRTH [None]
  - DRUG EFFECT DECREASED [None]
  - ILL-DEFINED DISORDER [None]
  - MATERNAL EXPOSURE DURING PREGNANCY [None]
